FAERS Safety Report 7880875-4 (Version None)
Quarter: 2011Q4

REPORT INFORMATION
  Report Type: 
  Country: None (occurrence: None)
  Receive Date: 20111101
  Receipt Date: 20111017
  Transmission Date: 20120403
  Serious: Yes (Hospitalization, Other)
  Sender: FDA-Public Use
  Company Number: JP-WATSON-2011-17535

PATIENT
  Age: 74 Year
  Sex: Male

DRUGS (4)
  1. FLUOROURACIL [Suspect]
     Dosage: 600 MG/M2, DAYS 1 AND 2
     Route: 042
  2. LEUCOVORIN CALCIUM [Suspect]
     Indication: COLON CANCER METASTATIC
     Dosage: 100 MG/M2, DAY 1 AND 2
     Route: 042
  3. FLUOROURACIL [Suspect]
     Indication: COLON CANCER METASTATIC
     Dosage: 400 MG/M2, DAYS 1 AND 2
     Route: 042
  4. OXALIPLATIN [Suspect]
     Indication: COLON CANCER METASTATIC
     Dosage: 85 MG/M2, ON DAY 1
     Route: 042

REACTIONS (4)
  - PYREXIA [None]
  - APHTHOUS STOMATITIS [None]
  - FEBRILE NEUTROPENIA [None]
  - LEUKOPENIA [None]
